FAERS Safety Report 24424309 (Version 1)
Quarter: 2024Q4

REPORT INFORMATION
  Report Type: Spontaneous
  Country: ET (occurrence: ET)
  Receive Date: 20241010
  Receipt Date: 20241010
  Transmission Date: 20250115
  Serious: Yes (Other)
  Sender: NOVARTIS
  Company Number: ET-002147023-NVSC2024ET199574

PATIENT
  Sex: Male

DRUGS (1)
  1. GLIVEC [Suspect]
     Active Substance: IMATINIB MESYLATE
     Indication: Chronic myeloid leukaemia
     Dosage: 600 MG (6X100MG)
     Route: 065

REACTIONS (4)
  - White blood cell count increased [Unknown]
  - Neutrophil count abnormal [Unknown]
  - Haemoglobin decreased [Unknown]
  - Therapy non-responder [Unknown]
